FAERS Safety Report 8228853-X (Version None)
Quarter: 2012Q1

REPORT INFORMATION
  Report Type: 
  Country: None (occurrence: None)
  Receive Date: 20120322
  Receipt Date: 20120309
  Transmission Date: 20120608
  Serious: Yes (Hospitalization)
  Sender: FDA-Public Use
  Company Number: US-ELI_LILLY_AND_COMPANY-US201108008576

PATIENT
  Sex: Male
  Weight: 77.551 kg

DRUGS (15)
  1. CETUXIMAB [Suspect]
     Indication: HEAD AND NECK CANCER
     Dosage: 400 MG/M2, LOADING DOSE DAY 1 EVERY 21 DAYS
     Route: 042
     Dates: start: 20110823
  2. VITAMIN B-12 [Concomitant]
     Indication: PROPHYLAXIS
     Dosage: UNK
     Dates: start: 20110816
  3. FOLIC ACID [Concomitant]
     Indication: PROPHYLAXIS
     Dosage: UNK
     Dates: start: 20110816
  4. BENADRYL [Concomitant]
     Indication: PREMEDICATION
     Dosage: UNK
     Dates: start: 20110823, end: 20110823
  5. DECADRON [Concomitant]
     Indication: PREMEDICATION
     Dosage: UNK
     Dates: start: 20110823, end: 20110824
  6. CETUXIMAB [Suspect]
     Dosage: 250 MG/M2, WEEKLY (1/W)
     Route: 042
     Dates: end: 20110830
  7. CETUXIMAB [Suspect]
     Dosage: 400 MG/M2, LOADING DOSE DAY 1 EVERY 21 DAYS
     Route: 042
     Dates: start: 20110913
  8. CARBOPLATIN [Suspect]
     Dosage: 5 AUC, DAY 1 EVERY 21 DAYS
     Route: 042
     Dates: start: 20110920
  9. DEMEROL [Concomitant]
     Indication: CHILLS
     Dosage: UNK
     Dates: start: 20110823, end: 20110823
  10. CARBOPLATIN [Suspect]
     Indication: HEAD AND NECK CANCER
     Dosage: 5 AUC, DAY 1 EVERY 21 DAYS
     Dates: start: 20110823, end: 20110913
  11. PEMETREXED [Suspect]
     Indication: HEAD AND NECK CANCER
     Dosage: 500 MG/M2, DAY 1 EVERY 21 DAYS
     Route: 042
     Dates: start: 20110823, end: 20110913
  12. PEMETREXED [Suspect]
     Dosage: 500 MG/M2, DAY 1 EVERY 21 DAYS
     Route: 042
     Dates: start: 20110920
  13. SOLU-MEDROL [Concomitant]
     Indication: HYPERSENSITIVITY
     Dosage: UNK
     Dates: start: 20110823, end: 20110823
  14. CETUXIMAB [Suspect]
     Dosage: 250 MG/M2, WEEKLY (1/W)
     Route: 042
  15. ALOXI [Concomitant]
     Indication: ANTIEMETIC SUPPORTIVE CARE
     Dosage: UNK
     Dates: start: 20110823, end: 20110823

REACTIONS (1)
  - PNEUMONIA [None]
